FAERS Safety Report 5582428-X (Version None)
Quarter: 2007Q4

REPORT INFORMATION
  Report Type: 
  Country: None (occurrence: None)
  Receive Date: 20071130
  Receipt Date: 20070130
  Transmission Date: 20080405
  Serious: Yes (Other)
  Sender: FDA-Public Use
  Company Number: WAES 0701USA04973

PATIENT
  Age: 56 Year
  Sex: Female

DRUGS (6)
  1. FOSAMAX [Suspect]
     Indication: OSTEOPENIA
     Dosage: 70 MG, PO
     Route: 048
     Dates: start: 20010101, end: 20060101
  2. FOSAMAX PLUS D [Suspect]
     Indication: OSTEOPENIA
     Dosage: 70 MG/2800, PO
     Route: 048
     Dates: start: 20050101, end: 20061101
  3. ASTELIN [Concomitant]
  4. GUAIFENEX [Concomitant]
  5. LIBRIUM [Concomitant]
  6. SYNTHROID [Concomitant]

REACTIONS (2)
  - OSTEONECROSIS [None]
  - TOOTH FRACTURE [None]
